FAERS Safety Report 12463269 (Version 1)
Quarter: 2016Q2

REPORT INFORMATION
  Report Type: Spontaneous
  Country: US (occurrence: None)
  Receive Date: 20160613
  Receipt Date: 20160613
  Transmission Date: 20160815
  Serious: Yes (Disabling)
  Sender: FDA-Public Use
  Company Number: None

PATIENT
  Age: 66 Year
  Sex: Female
  Weight: 90.72 kg

DRUGS (8)
  1. AMLODIPINE [Concomitant]
     Active Substance: AMLODIPINE BESYLATE
  2. ASPIRIN. [Concomitant]
     Active Substance: ASPIRIN
  3. BUPROPION 300X1, 300 MG VALEANT [Suspect]
     Active Substance: BUPROPION
     Indication: DEPRESSION
     Dosage: IN THE MORNING TAKEN BY MOUTH
     Route: 048
     Dates: start: 20141022, end: 20160427
  4. LOSARTAN POTASSIUM. [Concomitant]
     Active Substance: LOSARTAN POTASSIUM
  5. HYDROCHLOROTHIAZID [Concomitant]
     Active Substance: HYDROCHLOROTHIAZIDE
  6. VITAMIN D3 [Concomitant]
     Active Substance: CHOLECALCIFEROL
  7. ROPINIROLE. [Concomitant]
     Active Substance: ROPINIROLE
  8. ATORVASTATIN [Concomitant]
     Active Substance: ATORVASTATIN

REACTIONS (4)
  - Restless legs syndrome [None]
  - Drug dependence [None]
  - Extra dose administered [None]
  - Nerve injury [None]

NARRATIVE: CASE EVENT DATE: 20141024
